FAERS Safety Report 6888488-8 (Version None)
Quarter: 2010Q3

REPORT INFORMATION
  Report Type: 
  Country: None (occurrence: None)
  Receive Date: 20100730
  Receipt Date: 20100719
  Transmission Date: 20110219
  Serious: Yes (Other)
  Sender: FDA-Public Use
  Company Number: PHHY2010MX47381

PATIENT
  Age: 99 Year
  Sex: Female

DRUGS (2)
  1. ACLASTA [Suspect]
     Indication: OSTEOPOROSIS
     Dosage: 5MG PER YEAR
     Route: 042
     Dates: start: 20090301
  2. CALCITRIOL [Concomitant]

REACTIONS (3)
  - DYSPNOEA [None]
  - DYSURIA [None]
  - PYREXIA [None]
